FAERS Safety Report 11516522 (Version 6)
Quarter: 2016Q1

REPORT INFORMATION
  Report Type: Report from Study
  Country: FR (occurrence: FR)
  Receive Date: 20150917
  Receipt Date: 20160210
  Transmission Date: 20160525
  Serious: Yes (Life-Threatening, Hospitalization)
  Sender: FDA-Public Use
  Company Number: FR-ROCHE-1569035

PATIENT
  Age: 59 Year
  Sex: Male
  Weight: 75 kg

DRUGS (11)
  1. HEXAQUINE [Concomitant]
     Active Substance: NIAOULI OIL\QUININE BENZOATE\THIAMINE HYDROCHLORIDE
     Indication: MUSCLE SPASMS
     Dosage: 2 PILLS BY DAY
     Route: 065
     Dates: start: 20140605
  2. QUININE BENZOATE [Concomitant]
     Indication: MUSCLE SPASMS
     Route: 065
     Dates: start: 20130606
  3. TRAMADOL. [Concomitant]
     Active Substance: TRAMADOL
     Indication: PAIN
     Route: 065
     Dates: start: 20150212, end: 20150409
  4. VISMODEGIB [Suspect]
     Active Substance: VISMODEGIB
     Indication: BASAL CELL CARCINOMA
     Dosage: LAST DOSE PRIOR TO SAE: 21/APR/2015
     Route: 048
     Dates: start: 20130411, end: 20150421
  5. PARACETAMOL [Concomitant]
     Active Substance: ACETAMINOPHEN
     Indication: BACK PAIN
     Route: 065
     Dates: start: 201301
  6. RAMIPRIL. [Concomitant]
     Active Substance: RAMIPRIL
     Indication: BUNDLE BRANCH BLOCK LEFT
     Route: 065
     Dates: start: 201301
  7. LYRICA [Concomitant]
     Active Substance: PREGABALIN
     Indication: BACK PAIN
     Route: 065
     Dates: start: 20150410
  8. OXYCONTIN [Concomitant]
     Active Substance: OXYCODONE HYDROCHLORIDE
     Route: 065
     Dates: start: 20150410
  9. OROZAMUDOL [Concomitant]
     Active Substance: TRAMADOL
     Route: 065
     Dates: start: 20150212
  10. PARACETAMOL/CODEINE [Concomitant]
     Active Substance: ACETAMINOPHEN\CODEINE PHOSPHATE
     Indication: BACK PAIN
     Route: 065
     Dates: start: 20130404
  11. OXYCODONE [Concomitant]
     Active Substance: OXYCODONE
     Indication: BACK PAIN
     Route: 065
     Dates: start: 20150410

REACTIONS (3)
  - Hepatic mass [Not Recovered/Not Resolved]
  - Atrioventricular block complete [Recovered/Resolved]
  - Shock haemorrhagic [Recovered/Resolved]

NARRATIVE: CASE EVENT DATE: 20150422
